FAERS Safety Report 8478613-X (Version None)
Quarter: 2012Q2

REPORT INFORMATION
  Report Type: 
  Country: None (occurrence: None)
  Receive Date: 20120629
  Receipt Date: 20120619
  Transmission Date: 20120825
  Serious: Yes (Other)
  Sender: FDA-Public Use
  Company Number: JP-UCBSA-060149

PATIENT
  Age: 12 Month
  Sex: Male

DRUGS (2)
  1. KEPPRA [Suspect]
     Route: 048
  2. KEPPRA [Suspect]
     Route: 048

REACTIONS (3)
  - EPILEPSY [None]
  - DYSPNOEA [None]
  - BRADYCARDIA [None]
